FAERS Safety Report 5423614-9 (Version None)
Quarter: 2007Q3

REPORT INFORMATION
  Report Type: 
  Country: None (occurrence: None)
  Receive Date: 20070823
  Receipt Date: 20070809
  Transmission Date: 20080115
  Serious: Yes (Other)
  Sender: FDA-Public Use
  Company Number: GB-ASTRAZENECA-2007SE04513

PATIENT
  Age: 84 Year
  Sex: Female
  Weight: 45 kg

DRUGS (7)
  1. AMIAS [Suspect]
     Indication: LEFT VENTRICULAR DYSFUNCTION
     Route: 048
     Dates: start: 20070616, end: 20070702
  2. SALBUTAMOL [Concomitant]
     Indication: ASTHMA
     Route: 055
  3. SERETIDE [Concomitant]
     Indication: ASTHMA
     Route: 055
  4. LANSOPRAZOLE [Concomitant]
     Indication: DUODENAL ULCER
     Route: 048
  5. ASPIRIN [Concomitant]
     Indication: MYOCARDIAL ISCHAEMIA
     Route: 048
  6. BENDROFLUMETHIAZIDE [Concomitant]
     Indication: BLOOD PRESSURE INCREASED
     Route: 048
  7. SENNA GRANULES [Concomitant]
     Indication: CONSTIPATION
     Route: 065

REACTIONS (3)
  - CHOKING SENSATION [None]
  - COUGH [None]
  - HYPONATRAEMIA [None]
